FAERS Safety Report 6489972-1 (Version None)
Quarter: 2009Q4

REPORT INFORMATION
  Report Type: 
  Country: None (occurrence: None)
  Receive Date: 20091211
  Receipt Date: 20091204
  Transmission Date: 20100525
  Serious: Yes (Other)
  Sender: FDA-Public Use
  Company Number: PHEH2009US14939

PATIENT
  Sex: Female
  Weight: 60.68 kg

DRUGS (2)
  1. EXJADE [Suspect]
     Indication: MYELODYSPLASTIC SYNDROME
     Dosage: 1250 MG, QD
     Route: 048
     Dates: start: 20081101
  2. EXJADE [Suspect]
     Indication: IRON OVERLOAD

REACTIONS (1)
  - BLOOD DISORDER [None]
